FAERS Safety Report 5209833-5 (Version None)
Quarter: 2007Q1

REPORT INFORMATION
  Report Type: 
  Country: None (occurrence: None)
  Receive Date: 20070116
  Receipt Date: 20070110
  Transmission Date: 20070707
  Serious: Yes (Other)
  Sender: FDA-Public Use
  Company Number: BE-MERCK-0611BEL00037

PATIENT
  Age: 84 Year
  Sex: Female

DRUGS (3)
  1. ZETIA [Suspect]
     Indication: HYPERCHOLESTEROLAEMIA
     Route: 048
     Dates: start: 20050309, end: 20051020
  2. ZETIA [Suspect]
     Route: 048
     Dates: start: 20051123, end: 20051223
  3. STATIN (UNSPECIFIED) [Concomitant]
     Indication: HYPERCHOLESTEROLAEMIA
     Route: 048

REACTIONS (2)
  - HEADACHE [None]
  - MIGRAINE [None]
